FAERS Safety Report 18979913 (Version 1)
Quarter: 2021Q1

REPORT INFORMATION
  Report Type: Other
  Country: US (occurrence: US)
  Receive Date: 20210308
  Receipt Date: 20210308
  Transmission Date: 20210420
  Serious: Yes (Hospitalization, Other)
  Sender: FDA-Public Use
  Company Number: US-ROCHE-2771157

PATIENT
  Age: 85 Year
  Sex: Female

DRUGS (1)
  1. RITUXIMAB. [Suspect]
     Active Substance: RITUXIMAB
     Indication: PEMPHIGUS
     Route: 065

REACTIONS (5)
  - Kaposi^s varicelliform eruption [Recovered/Resolved]
  - Herpes simplex [Unknown]
  - Skin lesion [Unknown]
  - Enterobacter infection [Unknown]
  - Klebsiella infection [Unknown]
